FAERS Safety Report 12373298 (Version 1)
Quarter: 2016Q2

REPORT INFORMATION
  Report Type: Spontaneous
  Country: JP (occurrence: JP)
  Receive Date: 20160516
  Receipt Date: 20160516
  Transmission Date: 20160815
  Serious: Yes (Other)
  Sender: FDA-Public Use
  Company Number: JP-CORDEN PHARMA LATINA S.P.A.-JP-2016COR000140

PATIENT
  Age: 3 Year
  Sex: Male

DRUGS (8)
  1. ETOPOSIDE. [Suspect]
     Active Substance: ETOPOSIDE
     Dosage: 200 MG/M2 /DAY (DAYS -7, -6, -5, -4)
  2. CISPLATIN. [Suspect]
     Active Substance: CISPLATIN
     Indication: MEDULLOBLASTOMA
     Dosage: 2 MG/M2, UNK
  3. VINCRISTINE [Suspect]
     Active Substance: VINCRISTINE
     Indication: MEDULLOBLASTOMA
     Dosage: 1.5 MG/M2/DAY (DAY 1)
  4. CARBOPLATIN. [Suspect]
     Active Substance: CARBOPLATIN
     Indication: MEDULLOBLASTOMA
     Dosage: 400 MG/M2/DAY (DAYS-7,-6,-5,-4)
  5. CYCLOPHOSPHAMIDE. [Suspect]
     Active Substance: CYCLOPHOSPHAMIDE
     Indication: MEDULLOBLASTOMA
     Dosage: 1000 MG/M2/DAY (DAYS 1, 3, 5)
  6. ETOPOSIDE. [Suspect]
     Active Substance: ETOPOSIDE
     Indication: MEDULLOBLASTOMA
     Dosage: 100 MG/M2 /DAY (DAYS 1-5)
  7. METHOTREXATE [Suspect]
     Active Substance: METHOTREXATE
     Indication: MEDULLOBLASTOMA
     Dosage: 8 MG (DAY 1)
  8. L-PAM                              /00006401/ [Suspect]
     Active Substance: MELPHALAN
     Indication: MEDULLOBLASTOMA
     Dosage: 90 MG/M2, UNK

REACTIONS (2)
  - Cerebral haemangioma [Unknown]
  - Haemorrhage intracranial [Unknown]
